FAERS Safety Report 7250062-1 (Version None)
Quarter: 2011Q1

REPORT INFORMATION
  Report Type: 
  Country: None (occurrence: None)
  Receive Date: 20110128
  Receipt Date: 20110110
  Transmission Date: 20110831
  Serious: Yes (Hospitalization)
  Sender: FDA-Public Use
  Company Number: FI-BAYER-2010-005720

PATIENT
  Sex: Female

DRUGS (1)
  1. LEVONORGESTREL [Suspect]
     Indication: CONTRACEPTION
     Dosage: UNK
     Dates: start: 20071108

REACTIONS (1)
  - OVARIAN GERM CELL TERATOMA BENIGN [None]
